FAERS Safety Report 15119503 (Version 2)
Quarter: 2019Q2

REPORT INFORMATION
  Report Type: Spontaneous
  Country: US (occurrence: US)
  Receive Date: 20180709
  Receipt Date: 20190625
  Transmission Date: 20190711
  Serious: No
  Sender: FDA-Public Use
  Company Number: US-PFIZER INC-2018272587

PATIENT
  Age: 79 Year
  Sex: Female
  Weight: 74 kg

DRUGS (2)
  1. IBRANCE [Suspect]
     Active Substance: PALBOCICLIB
     Indication: BREAST CANCER METASTATIC
     Dosage: 125 MG, CYCLIC (21 DAYS ON AND 7 DAYS OFF)
     Route: 048
     Dates: start: 201801, end: 201806
  2. IBRANCE [Suspect]
     Active Substance: PALBOCICLIB
     Dosage: 100 MG, CYCLIC (21 DAYS ON, 7 DAYS OFF)
     Dates: start: 201806

REACTIONS (3)
  - Weight increased [Unknown]
  - Fatigue [Recovering/Resolving]
  - Limb mass [Unknown]

NARRATIVE: CASE EVENT DATE: 2018
